FAERS Safety Report 8844666 (Version 1)
Quarter: 2012Q4

REPORT INFORMATION
  Report Type: Spontaneous
  Country: US (occurrence: None)
  Receive Date: 20121012
  Receipt Date: 20121012
  Transmission Date: 20130627
  Serious: Yes (Hospitalization, Other)
  Sender: FDA-Public Use
  Company Number: 2012-000142

PATIENT
  Age: 72 Year
  Sex: Female

DRUGS (5)
  1. ACTONEL [Suspect]
     Route: 048
  2. FOSAMAX (ALENDRONATE SODIUM) [Suspect]
     Indication: OSTEOPOROSIS
     Dosage: once
     Route: 048
     Dates: start: 1995, end: 200105
  3. FOSAMAX (ALENDRONATE SODIUM) [Suspect]
     Indication: OSTEOPOROSIS
     Dosage: once
     Route: 048
     Dates: start: 20010530, end: 2006
  4. FOSAMAX PLUS D [Suspect]
     Indication: OSTEOPOROSIS
     Route: 048
     Dates: start: 20060809, end: 20080424
  5. BONIVA [Suspect]
     Indication: OSTEOPOROSIS
     Route: 048
     Dates: start: 20080424, end: 201006

REACTIONS (8)
  - Stress fracture [None]
  - Femur fracture [None]
  - Arthralgia [None]
  - Fall [None]
  - Pain in extremity [None]
  - Pain in extremity [None]
  - Fracture nonunion [None]
  - Bursitis [None]
